FAERS Safety Report 4779418-3 (Version None)
Quarter: 2005Q3

REPORT INFORMATION
  Report Type: 
  Country: None (occurrence: None)
  Receive Date: 20050923
  Receipt Date: 20050919
  Transmission Date: 20060218
  Serious: Yes (Hospitalization)
  Sender: FDA-Public Use
  Company Number: 005687

PATIENT
  Sex: 0

DRUGS (2)
  1. REVIA [Suspect]
     Indication: DRUG DETOXIFICATION
     Dosage: 50 MG, QD
  2. ANAESTHETICS, GENERAL [Suspect]
     Indication: DRUG DETOXIFICATION

REACTIONS (2)
  - BIPOLAR I DISORDER [None]
  - SUICIDAL IDEATION [None]
